FAERS Safety Report 4621862-9 (Version None)
Quarter: 2005Q1

REPORT INFORMATION
  Report Type: 
  Country: None (occurrence: None)
  Receive Date: 20050329
  Receipt Date: 20050318
  Transmission Date: 20050727
  Serious: Yes (Death, Hospitalization, Other)
  Sender: FDA-Public Use
  Company Number: SE-BRISTOL-MYERS SQUIBB COMPANY-12908372

PATIENT
  Age: 67 Year
  Sex: Female

DRUGS (12)
  1. HOLOXAN [Suspect]
     Indication: MALIGNANT SOFT TISSUE NEOPLASM
     Dosage: CYCLE 2: 18-MAR-2004 AT 20% DOSE REDUCTION
     Route: 042
     Dates: start: 20040224, end: 20040318
  2. DOXORUBICIN HCL [Suspect]
     Indication: MALIGNANT SOFT TISSUE NEOPLASM
     Route: 042
     Dates: start: 20040224, end: 20040318
  3. DIFLUCAN [Concomitant]
  4. LANSOPRAZOLE [Concomitant]
  5. SIMVASTATIN [Concomitant]
  6. LEVAXIN [Concomitant]
  7. ACETAMINOPHEN [Concomitant]
  8. TENORMIN [Concomitant]
  9. ALLOPURINOL [Concomitant]
  10. NAVOBAN [Concomitant]
  11. DURAGESIC-100 [Concomitant]
  12. METHYLENE BLUE [Concomitant]
     Indication: PROPHYLAXIS
     Dates: start: 20040318

REACTIONS (8)
  - AGITATION [None]
  - ANXIETY [None]
  - CONFUSIONAL STATE [None]
  - DEPRESSED LEVEL OF CONSCIOUSNESS [None]
  - GENERAL PHYSICAL HEALTH DETERIORATION [None]
  - HAEMOGLOBIN DECREASED [None]
  - NEUROTOXICITY [None]
  - ULCER HAEMORRHAGE [None]
